FAERS Safety Report 9857376 (Version 1)
Quarter: 2014Q1

REPORT INFORMATION
  Report Type: Spontaneous
  Country: FR (occurrence: FR)
  Receive Date: 20140131
  Receipt Date: 20140131
  Transmission Date: 20141002
  Serious: Yes (Other)
  Sender: FDA-Public Use
  Company Number: FR-ROCHE-1340215

PATIENT
  Age: 45 Year
  Sex: Female

DRUGS (7)
  1. AVASTIN [Suspect]
     Indication: BREAST CANCER
     Route: 042
     Dates: start: 20131104, end: 20131216
  2. AVASTIN [Suspect]
     Route: 042
     Dates: start: 20131125
  3. AVASTIN [Suspect]
     Route: 042
     Dates: start: 20131104
  4. TAXOL [Suspect]
     Indication: BREAST CANCER
     Route: 042
     Dates: start: 20131104, end: 20131216
  5. TAXOL [Suspect]
     Route: 042
     Dates: start: 20131104
  6. TAXOL [Suspect]
     Route: 042
     Dates: start: 20131125
  7. AERIUS [Concomitant]

REACTIONS (2)
  - Pruritus [Unknown]
  - Folliculitis [Unknown]
